APPROVED DRUG PRODUCT: FUSILEV
Active Ingredient: LEVOLEUCOVORIN CALCIUM
Strength: EQ 250MG BASE/25ML (EQ 10MG BASE/ML) **Federal Register determination that product was not discontinued or withdrawn for safety or effectiveness reasons**
Dosage Form/Route: SOLUTION;INTRAVENOUS
Application: N020140 | Product #003
Applicant: ACROTECH BIOPHARMA INC
Approved: Apr 29, 2011 | RLD: Yes | RS: No | Type: DISCN